FAERS Safety Report 11816562 (Version 1)
Quarter: 2015Q4

REPORT INFORMATION
  Report Type: Spontaneous
  Country: BE (occurrence: BE)
  Receive Date: 20151210
  Receipt Date: 20151210
  Transmission Date: 20160305
  Serious: Yes (Other)
  Sender: FDA-Public Use
  Company Number: BE-ROCHE-1674604

PATIENT
  Age: 75 Year
  Sex: Male

DRUGS (2)
  1. CELLCEPT [Suspect]
     Active Substance: MYCOPHENOLATE MOFETIL\MYCOPHENOLATE MOFETIL HYDROCHLORIDE
     Indication: TUBULOINTERSTITIAL NEPHRITIS
     Route: 065
     Dates: start: 20151102, end: 20151107
  2. CELLCEPT [Suspect]
     Active Substance: MYCOPHENOLATE MOFETIL\MYCOPHENOLATE MOFETIL HYDROCHLORIDE
     Indication: AORTITIS

REACTIONS (2)
  - Off label use [Unknown]
  - Food intolerance [Unknown]

NARRATIVE: CASE EVENT DATE: 20151103
